FAERS Safety Report 5120644-1 (Version None)
Quarter: 2006Q4

REPORT INFORMATION
  Report Type: 
  Country: None (occurrence: None)
  Receive Date: 20061004
  Receipt Date: 20061003
  Transmission Date: 20070319
  Serious: Yes (Other)
  Sender: FDA-Public Use
  Company Number: JP-ALLERGAN-0605881US

PATIENT
  Sex: Female

DRUGS (12)
  1. BOTOX [Suspect]
     Indication: BLEPHAROSPASM
     Dosage: 15 UNITS, SINGLE
     Route: 030
     Dates: start: 19981016, end: 19981016
  2. BOTOX [Suspect]
     Dosage: UNK, SINGLE
     Route: 030
     Dates: start: 19990210, end: 19990210
  3. FLUDIAZEPAM [Concomitant]
     Dates: start: 19981016
  4. AMANTADINE HCL [Concomitant]
     Dates: start: 19981016
  5. CAFFEINE AND SODIUM BENZOATE [Concomitant]
     Dates: start: 19981016
  6. ETHYL ICOSAPENTATE [Concomitant]
     Dates: start: 19981016, end: 20000422
  7. DIAZEPAM [Concomitant]
     Dates: start: 19981016, end: 19981127
  8. CALCITRIOL [Concomitant]
     Dates: start: 19981016
  9. MENATETRENONE [Concomitant]
     Dates: start: 19981016
  10. TOCOPHERYL NICOTINATE [Concomitant]
     Dates: start: 19981127, end: 19990122
  11. METOCLOPRAMIDE [Concomitant]
     Dates: start: 19981127, end: 19990122
  12. KALLIDINOGENASE [Concomitant]
     Dates: start: 19981127, end: 19990122

REACTIONS (3)
  - BLOOD ALKALINE PHOSPHATASE INCREASED [None]
  - FALL [None]
  - SPINAL COMPRESSION FRACTURE [None]
